FAERS Safety Report 11410968 (Version 1)
Quarter: 2015Q3

REPORT INFORMATION
  Report Type: Spontaneous
  Country: US (occurrence: US)
  Receive Date: 20150821
  Receipt Date: 20150821
  Transmission Date: 20151125
  Serious: No
  Sender: FDA-Public Use
  Company Number: US-ELI_LILLY_AND_COMPANY-US201002003852

PATIENT
  Age: 47 Year
  Sex: Male

DRUGS (4)
  1. HUMULIN R [Suspect]
     Active Substance: INSULIN HUMAN
     Dosage: UNK, AS NEEDED
     Route: 058
     Dates: start: 199512
  2. HUMULIN R [Suspect]
     Active Substance: INSULIN HUMAN
     Dosage: UNK, AS NEEDED
     Dates: start: 199512
  3. LASIX [Concomitant]
     Active Substance: FUROSEMIDE
  4. COZAAR [Concomitant]
     Active Substance: LOSARTAN POTASSIUM

REACTIONS (9)
  - Hypoglycaemia [Unknown]
  - Eye disorder [Unknown]
  - Knee operation [Recovered/Resolved]
  - Weight decreased [Unknown]
  - Blood glucose decreased [Recovered/Resolved]
  - Fall [Recovered/Resolved]
  - Visual impairment [Unknown]
  - Retinal disorder [Unknown]
  - Joint injury [Recovered/Resolved]

NARRATIVE: CASE EVENT DATE: 2008
